FAERS Safety Report 20321594 (Version 1)
Quarter: 2022Q1

REPORT INFORMATION
  Report Type: Spontaneous
  Country: US (occurrence: None)
  Receive Date: 20220110
  Receipt Date: 20220110
  Transmission Date: 20220424
  Serious: No
  Sender: FDA-Public Use
  Company Number: None

PATIENT
  Age: 60 Year
  Sex: Female

DRUGS (1)
  1. EVEROLIMUS [Suspect]
     Active Substance: EVEROLIMUS
     Route: 048
     Dates: start: 2021

REACTIONS (2)
  - Adrenal insufficiency [None]
  - Off label use [None]

NARRATIVE: CASE EVENT DATE: 20220103
